FAERS Safety Report 17505769 (Version 1)
Quarter: 2020Q1

REPORT INFORMATION
  Report Type: Spontaneous
  Country: US (occurrence: US)
  Receive Date: 20200305
  Receipt Date: 20200305
  Transmission Date: 20200409
  Serious: Yes (Other)
  Sender: FDA-Public Use
  Company Number: US-ELI_LILLY_AND_COMPANY-US202002012862

PATIENT
  Age: 20 Year
  Sex: Female

DRUGS (1)
  1. PROZAC [Suspect]
     Active Substance: FLUOXETINE HYDROCHLORIDE
     Indication: ANXIETY
     Dosage: UNK UNK, UNKNOWN
     Route: 065

REACTIONS (6)
  - Malaise [Unknown]
  - Heart rate increased [Unknown]
  - Incoherent [Unknown]
  - Confusional state [Not Recovered/Not Resolved]
  - Dysarthria [Unknown]
  - Anxiety [Unknown]

NARRATIVE: CASE EVENT DATE: 20200224
